FAERS Safety Report 21203984 (Version 2)
Quarter: 2022Q4

REPORT INFORMATION
  Report Type: Report from Study
  Country: US (occurrence: US)
  Receive Date: 20220811
  Receipt Date: 20221028
  Transmission Date: 20230113
  Serious: Yes (Other)
  Sender: FDA-Public Use
  Company Number: US-ABBVIE-22K-163-4499931-00

PATIENT
  Age: 59 Year
  Sex: Male
  Weight: 79.832 kg

DRUGS (10)
  1. HUMIRA [Suspect]
     Active Substance: ADALIMUMAB
     Indication: Rheumatoid arthritis
     Route: 058
     Dates: start: 2019
  2. SIMVASTATINX [Concomitant]
     Indication: Blood cholesterol increased
  3. MELOXICAM [Concomitant]
     Active Substance: MELOXICAM
     Indication: Joint swelling
  4. ACITRETINE CF [Concomitant]
     Indication: Skin disorder
  5. VITAMIN B3 GERIMED [Concomitant]
     Indication: Vitamin supplementation
  6. PFIZER-BIONTECH COVID-19 VACCINE [Concomitant]
     Active Substance: TOZINAMERAN
     Indication: COVID-19 immunisation
     Dosage: TIME INTERVAL: TOTAL: 1ST DOSE?ONE IN ONCE
     Route: 030
     Dates: start: 20210326, end: 20210326
  7. PFIZER-BIONTECH COVID-19 VACCINE [Concomitant]
     Active Substance: TOZINAMERAN
     Indication: COVID-19 immunisation
     Dosage: 3RD DOSE ( BOOSTER DOSE )?ONE IN ONCE
     Route: 030
     Dates: start: 20211110, end: 20211110
  8. PFIZER-BIONTECH COVID-19 VACCINE [Concomitant]
     Active Substance: TOZINAMERAN
     Indication: COVID-19 immunisation
     Dosage: TIME INTERVAL: TOTAL: 2ND DOSE?ONE IN ONCE
     Route: 030
     Dates: start: 20210416, end: 20210416
  9. FISH OIL [Concomitant]
     Active Substance: FISH OIL
     Indication: Vitamin supplementation
  10. GLUCOSAMINE [Concomitant]
     Active Substance: GLUCOSAMINE
     Indication: Arthropathy

REACTIONS (5)
  - Exostosis [Recovering/Resolving]
  - Joint lock [Unknown]
  - Scar [Unknown]
  - Arthropathy [Unknown]
  - Joint range of motion decreased [Unknown]

NARRATIVE: CASE EVENT DATE: 20190201
